FAERS Safety Report 6609179-4 (Version None)
Quarter: 2010Q1

REPORT INFORMATION
  Report Type: 
  Country: None (occurrence: None)
  Receive Date: 20100224
  Receipt Date: 20100209
  Transmission Date: 20100710
  Serious: No
  Sender: FDA-Public Use
  Company Number: 508767

PATIENT
  Sex: Female

DRUGS (1)
  1. SODIUM CHLORIDE [Suspect]
     Dates: start: 20090402, end: 20090402

REACTIONS (10)
  - BLOOD DISORDER [None]
  - CARDIO-RESPIRATORY ARREST [None]
  - FEELING ABNORMAL [None]
  - HEPATIC FAILURE [None]
  - HYPOAESTHESIA [None]
  - OEDEMA PERIPHERAL [None]
  - PLATELET COUNT DECREASED [None]
  - RENAL FAILURE [None]
  - SERRATIA INFECTION [None]
  - WEIGHT INCREASED [None]
